FAERS Safety Report 6188905-5 (Version None)
Quarter: 2009Q2

REPORT INFORMATION
  Report Type: 
  Country: None (occurrence: None)
  Receive Date: 20090513
  Receipt Date: 20090506
  Transmission Date: 20091009
  Serious: Yes (Other)
  Sender: FDA-Public Use
  Company Number: PHHY2009DE06061

PATIENT
  Sex: Male

DRUGS (3)
  1. RASILEZ [Suspect]
     Indication: HYPERTENSION
  2. BRONCHORETARD [Suspect]
     Indication: BRONCHITIS
     Dosage: MAXIMAL DOSAGE
  3. ATOSIL [Suspect]
     Indication: TACHYCARDIA
     Dosage: 1 DF, TID

REACTIONS (4)
  - BRONCHITIS [None]
  - CONDITION AGGRAVATED [None]
  - HEPATIC ENZYME INCREASED [None]
  - TACHYCARDIA [None]
